FAERS Safety Report 25935370 (Version 1)
Quarter: 2025Q4

REPORT INFORMATION
  Report Type: Spontaneous
  Country: US (occurrence: None)
  Receive Date: 20251017
  Receipt Date: 20251017
  Transmission Date: 20260118
  Serious: Yes (Life-Threatening, Hospitalization, Disabling)
  Sender: FDA-CTU
  Company Number: None

PATIENT
  Age: 36 Year
  Sex: Male
  Weight: 185.97 kg

DRUGS (3)
  1. SEROQUEL [Suspect]
     Active Substance: QUETIAPINE FUMARATE
  2. ABILIFY [Suspect]
     Active Substance: ARIPIPRAZOLE
  3. ZYPREXA [Suspect]
     Active Substance: OLANZAPINE

REACTIONS (11)
  - Weight increased [None]
  - Hernia [None]
  - Sleep apnoea syndrome [None]
  - Arthralgia [None]
  - Hidradenitis [None]
  - Acne [None]
  - Suicidal ideation [None]
  - Attention deficit hyperactivity disorder [None]
  - Bipolar disorder [None]
  - Schizophrenia [None]
  - Victim of abuse [None]
